FAERS Safety Report 15320458 (Version 2)
Quarter: 2018Q3

REPORT INFORMATION
  Report Type: Spontaneous
  Country: US (occurrence: US)
  Receive Date: 20180827
  Receipt Date: 20180906
  Transmission Date: 20181010
  Serious: No
  Sender: FDA-Public Use
  Company Number: US-JNJFOC-20180726849

PATIENT
  Sex: Female

DRUGS (2)
  1. MIDODRINE [Concomitant]
     Active Substance: MIDODRINE
     Indication: HYPOTENSION
     Route: 048
     Dates: start: 2011
  2. FENTANYL. [Suspect]
     Active Substance: FENTANYL
     Indication: PAIN
     Route: 062

REACTIONS (5)
  - Logorrhoea [Unknown]
  - Hallucination, auditory [Unknown]
  - Insomnia [Unknown]
  - Drug ineffective [Unknown]
  - Euphoric mood [Unknown]

NARRATIVE: CASE EVENT DATE: 2011
